FAERS Safety Report 25627040 (Version 1)
Quarter: 2025Q3

REPORT INFORMATION
  Report Type: Spontaneous
  Country: US (occurrence: None)
  Receive Date: 20250730
  Receipt Date: 20250730
  Transmission Date: 20251020
  Serious: Yes (Hospitalization)
  Sender: FDA-CTU
  Company Number: None

PATIENT
  Age: 42 Year
  Sex: Female

DRUGS (19)
  1. XOLAIR [Suspect]
     Active Substance: OMALIZUMAB
     Indication: Asthma
     Dosage: FREQUENCY : MONTHLY;?
     Route: 058
     Dates: start: 20250521
  2. ALBUTEROL [Concomitant]
     Active Substance: ALBUTEROL
  3. TRELEGY ELLIPTA [Concomitant]
     Active Substance: FLUTICASONE FUROATE\UMECLIDINIUM BROMIDE\VILANTEROL TRIFENATATE
  4. DUONEB [Concomitant]
     Active Substance: ALBUTEROL SULFATE\IPRATROPIUM BROMIDE
  5. ESZOPICLONE [Concomitant]
     Active Substance: ESZOPICLONE
  6. ELETRIPTAN [Concomitant]
     Active Substance: ELETRIPTAN
  7. SPIRONOLACTONE [Concomitant]
     Active Substance: SPIRONOLACTONE
  8. DICYCLOMINE [Concomitant]
     Active Substance: DICYCLOMINE HYDROCHLORIDE
  9. PREGABALIN [Concomitant]
     Active Substance: PREGABALIN
  10. BACLOFEN [Concomitant]
     Active Substance: BACLOFEN
  11. BUPROPION [Concomitant]
     Active Substance: BUPROPION
  12. PROMETHAZINE [Concomitant]
     Active Substance: PROMETHAZINE HYDROCHLORIDE
  13. TRULANCE [Concomitant]
     Active Substance: PLECANATIDE
  14. CLONAZEPAM [Concomitant]
     Active Substance: CLONAZEPAM
  15. TORSEMIDE [Concomitant]
     Active Substance: TORSEMIDE
  16. VYVANSE [Concomitant]
     Active Substance: LISDEXAMFETAMINE DIMESYLATE
  17. LAMOTRIGINE [Concomitant]
     Active Substance: LAMOTRIGINE
  18. LISINOPRIL [Concomitant]
     Active Substance: LISINOPRIL
  19. FAMOTIDINE [Concomitant]
     Active Substance: FAMOTIDINE

REACTIONS (2)
  - Systemic lupus erythematosus [None]
  - Intentional dose omission [None]

NARRATIVE: CASE EVENT DATE: 20250701
